FAERS Safety Report 24071785 (Version 1)
Quarter: 2024Q3

REPORT INFORMATION
  Report Type: Report from Study
  Country: CN (occurrence: CN)
  Receive Date: 20240710
  Receipt Date: 20240710
  Transmission Date: 20241017
  Serious: No
  Sender: ROCHE
  Company Number: CN-ROCHE-3551201

PATIENT
  Age: 9 Year
  Sex: Female
  Weight: 60.0 kg

DRUGS (1)
  1. EVRYSDI [Suspect]
     Active Substance: RISDIPLAM
     Indication: Spinal muscular atrophy
     Route: 048
     Dates: start: 20231020

REACTIONS (2)
  - Drug ineffective [Unknown]
  - Skin discolouration [Not Recovered/Not Resolved]
